FAERS Safety Report 11791108 (Version 3)
Quarter: 2016Q1

REPORT INFORMATION
  Report Type: Spontaneous
  Country: US (occurrence: US)
  Receive Date: 20151201
  Receipt Date: 20160209
  Transmission Date: 20160525
  Serious: Yes (Death, Hospitalization, Other)
  Sender: FDA-Public Use
  Company Number: US-BRISTOL-MYERS SQUIBB COMPANY-BMS-2015-083332

PATIENT
  Age: 55 Year
  Sex: Female
  Weight: 30 kg

DRUGS (1)
  1. OPDIVO [Suspect]
     Active Substance: NIVOLUMAB
     Indication: OVARIAN CANCER
     Dosage: 3 MG/KG, Q2WK
     Route: 042
     Dates: start: 20150514

REACTIONS (7)
  - Malignant neoplasm progression [Fatal]
  - Abdominal wall abscess [Unknown]
  - Metabolic encephalopathy [Unknown]
  - Septic shock [Unknown]
  - Acute kidney injury [Unknown]
  - Small intestinal obstruction [Unknown]
  - Off label use [Unknown]

NARRATIVE: CASE EVENT DATE: 20151019
